FAERS Safety Report 16779256 (Version 1)
Quarter: 2019Q3

REPORT INFORMATION
  Report Type: Spontaneous
  Country: US (occurrence: US)
  Receive Date: 20190716
  Receipt Date: 20190716
  Transmission Date: 20191005
  Serious: No
  Sender: FDA-Public Use
  Company Number: None

PATIENT
  Age: 66 Year
  Sex: Female

DRUGS (2)
  1. EXEMESTANE. [Concomitant]
     Active Substance: EXEMESTANE
  2. IBRANCE [Suspect]
     Active Substance: PALBOCICLIB
     Route: 048
     Dates: start: 201907

REACTIONS (5)
  - Arthralgia [None]
  - Skin burning sensation [None]
  - Dry skin [None]
  - Blood cholesterol increased [None]
  - Pruritus [None]

NARRATIVE: CASE EVENT DATE: 20190716
